FAERS Safety Report 7564014-5 (Version None)
Quarter: 2011Q2

REPORT INFORMATION
  Report Type: 
  Country: None (occurrence: None)
  Receive Date: 20110622
  Receipt Date: 20110609
  Transmission Date: 20111010
  Serious: Yes (Other)
  Sender: FDA-Public Use
  Company Number: US-BRACCO-006332

PATIENT
  Sex: Male
  Weight: 74.09 kg

DRUGS (7)
  1. ASPIRIN [Concomitant]
  2. FISH OIL [Concomitant]
  3. CARDIOGEN-82 [Suspect]
     Indication: SCAN MYOCARDIAL PERFUSION
     Dosage: AT STRESS
     Route: 042
     Dates: start: 20110217, end: 20110217
  4. OMEPRAZOLE [Concomitant]
  5. CRESTOR [Concomitant]
  6. CARDIOGEN-82 [Suspect]
     Indication: CORONARY ARTERY DISEASE
     Dosage: AT REST
     Route: 042
     Dates: start: 20110217, end: 20110217
  7. CARISOPRODOL [Concomitant]

REACTIONS (2)
  - RADIATION EXPOSURE [None]
  - INFLUENZA LIKE ILLNESS [None]
